FAERS Safety Report 10878862 (Version 1)
Quarter: 2015Q1

REPORT INFORMATION
  Report Type: Spontaneous
  Country: US (occurrence: None)
  Receive Date: 20150224
  Receipt Date: 20150224
  Transmission Date: 20150721
  Serious: Yes (Other)
  Sender: FDA-Public Use
  Company Number: None

PATIENT
  Sex: Female
  Weight: 59.24 kg

DRUGS (2)
  1. KADCYLA [Suspect]
     Active Substance: ADO-TRASTUZUMAB EMTANSINE
     Indication: BREAST CANCER
     Dosage: 210 MG IN NS ?260.5 ML
     Route: 042
     Dates: start: 20130508, end: 20140514
  2. ZOMETA [Concomitant]
     Active Substance: ZOLEDRONIC ACID

REACTIONS (4)
  - Nodular regenerative hyperplasia [None]
  - Hepatic cirrhosis [None]
  - Portal fibrosis [None]
  - Portal hypertension [None]
